FAERS Safety Report 21924634 (Version 2)
Quarter: 2023Q1

REPORT INFORMATION
  Report Type: Spontaneous
  Country: US (occurrence: US)
  Receive Date: 20230130
  Receipt Date: 20230308
  Transmission Date: 20230418
  Serious: Yes (Other)
  Sender: FDA-Public Use
  Company Number: US-BRISTOL-MYERS SQUIBB COMPANY-2023-012469

PATIENT
  Age: 67 Year
  Sex: Male
  Weight: 118.58 kg

DRUGS (1)
  1. REVLIMID [Suspect]
     Active Substance: LENALIDOMIDE
     Indication: Plasma cell myeloma
     Dosage: DAILY DAYS 1-21, EVERY 28 DAYS
     Route: 048
     Dates: start: 20220608, end: 2023

REACTIONS (4)
  - Diarrhoea [Not Recovered/Not Resolved]
  - Neuropathy peripheral [Not Recovered/Not Resolved]
  - Rash [Unknown]
  - Drug intolerance [Recovering/Resolving]

NARRATIVE: CASE EVENT DATE: 20230301
